FAERS Safety Report 10989493 (Version 2)
Quarter: 2015Q2

REPORT INFORMATION
  Report Type: Spontaneous
  Country: US (occurrence: US)
  Receive Date: 20150406
  Receipt Date: 20150519
  Transmission Date: 20150821
  Serious: No
  Sender: FDA-Public Use
  Company Number: US-AMGEN-USASL2015031612

PATIENT
  Age: 47 Year
  Sex: Male

DRUGS (1)
  1. ENBREL [Suspect]
     Active Substance: ETANERCEPT
     Indication: RHEUMATOID ARTHRITIS
     Dosage: 50 MG, ONCE A WEEK
     Route: 065
     Dates: start: 20140710

REACTIONS (11)
  - Joint stiffness [Not Recovered/Not Resolved]
  - Palpitations [Not Recovered/Not Resolved]
  - Sleep disorder [Not Recovered/Not Resolved]
  - Arthritis [Recovered/Resolved]
  - Vibratory sense increased [Not Recovered/Not Resolved]
  - Fatigue [Not Recovered/Not Resolved]
  - Sinusitis [Not Recovered/Not Resolved]
  - Nasopharyngitis [Recovered/Resolved]
  - Paraesthesia [Not Recovered/Not Resolved]
  - Arthralgia [Not Recovered/Not Resolved]
  - Euphoric mood [Not Recovered/Not Resolved]

NARRATIVE: CASE EVENT DATE: 201407
